FAERS Safety Report 5465263-2 (Version None)
Quarter: 2007Q3

REPORT INFORMATION
  Report Type: 
  Country: None (occurrence: None)
  Receive Date: 20070924
  Receipt Date: 20070913
  Transmission Date: 20080115
  Serious: Yes (Hospitalization)
  Sender: FDA-Public Use
  Company Number: PHHO2007JP15232

PATIENT
  Sex: Male
  Weight: 68 kg

DRUGS (12)
  1. DIOVAN [Suspect]
     Indication: HYPERTENSION
     Dosage: 40 MG, QD
     Route: 048
     Dates: start: 20030213, end: 20041206
  2. FLIVAS [Concomitant]
     Indication: BENIGN PROSTATIC HYPERPLASIA
  3. ONEALFA [Concomitant]
     Indication: OSTEOPOROSIS
  4. UBRETID [Concomitant]
     Indication: NEUROGENIC BLADDER
  5. URSO 250 [Concomitant]
     Indication: HEPATIC STEATOSIS
  6. SHAKUYAKUKANZOUTOU [Concomitant]
     Indication: MYALGIA
  7. BUSCOPAN [Concomitant]
     Indication: ABDOMINAL PAIN
  8. ODRIK [Concomitant]
     Indication: HYPERTENSION
  9. RISEDRONATE SODIUM [Concomitant]
     Indication: OSTEOPOROSIS
  10. KENTON [Concomitant]
     Indication: BACK PAIN
  11. GLORIAMIN [Concomitant]
     Indication: GASTRITIS
  12. PERINDOPRIL ERBUMINE [Concomitant]
     Indication: HYPERTENSION

REACTIONS (1)
  - LUNG NEOPLASM MALIGNANT [None]
